FAERS Safety Report 9632305 (Version 2)
Quarter: 2013Q4

REPORT INFORMATION
  Report Type: Report from Study
  Country: US (occurrence: US)
  Receive Date: 20131018
  Receipt Date: 20131018
  Transmission Date: 20140711
  Serious: Yes (Hospitalization, Other)
  Sender: FDA-Public Use
  Company Number: US-ABBVIE-12P-163-1023857-00

PATIENT
  Age: 78 Year
  Sex: Male

DRUGS (17)
  1. HUMIRA [Suspect]
     Indication: RHEUMATOID ARTHRITIS
     Dates: start: 200401
  2. HUMIRA [Suspect]
     Dates: start: 20100608, end: 20130429
  3. HUMIRA [Suspect]
     Route: 058
     Dates: start: 20130620
  4. CELEBREX [Concomitant]
     Indication: PRODUCT USED FOR UNKNOWN INDICATION
     Dates: end: 20130504
  5. METHOTREXATE [Concomitant]
     Indication: PRODUCT USED FOR UNKNOWN INDICATION
     Dosage: TWO TABS Q ONCE WEEKLY
     Route: 048
     Dates: end: 20130504
  6. ASPIRIN [Concomitant]
     Indication: PRODUCT USED FOR UNKNOWN INDICATION
     Dates: end: 20130504
  7. FOLIC ACID [Concomitant]
     Indication: PRODUCT USED FOR UNKNOWN INDICATION
     Route: 048
     Dates: end: 20130504
  8. OMEPRAZOLE [Concomitant]
     Indication: PRODUCT USED FOR UNKNOWN INDICATION
     Dosage: CPDR
  9. MOTRIN IB [Concomitant]
     Indication: PRODUCT USED FOR UNKNOWN INDICATION
     Dosage: UP TO 3 TIMES DAILY
  10. BACTRIM DS [Concomitant]
     Indication: PRODUCT USED FOR UNKNOWN INDICATION
     Dosage: MON, WED AND FRI
  11. PREDNISONE [Concomitant]
     Indication: PRODUCT USED FOR UNKNOWN INDICATION
     Route: 048
  12. PREDNISONE [Concomitant]
     Route: 048
  13. PREDNISONE [Concomitant]
     Route: 048
  14. PREDNISONE [Concomitant]
     Route: 048
  15. PREDNISONE [Concomitant]
     Route: 048
  16. CIPROFLOXACIN [Concomitant]
     Indication: ANTIBIOTIC PROPHYLAXIS
  17. CIPROFLOXACIN [Concomitant]
     Indication: URETERAL STENT REMOVAL

REACTIONS (31)
  - Ureteric obstruction [Unknown]
  - Renal failure [Recovering/Resolving]
  - Azotaemia [Unknown]
  - Weight decreased [Unknown]
  - Obstruction [Unknown]
  - Nephrolithiasis [Not Recovered/Not Resolved]
  - Urinary tract infection fungal [Unknown]
  - Arthropathy [Unknown]
  - Limb deformity [Unknown]
  - Crepitations [Unknown]
  - Rhinorrhoea [Unknown]
  - Unevaluable event [Unknown]
  - Rheumatoid arthritis [Unknown]
  - Rales [Unknown]
  - Muscle atrophy [Unknown]
  - Fatigue [Unknown]
  - Dry eye [Unknown]
  - Cachexia [Unknown]
  - Cough [Unknown]
  - Solar dermatitis [Unknown]
  - Malaise [Unknown]
  - Renal failure [Unknown]
  - Respiratory failure [Unknown]
  - Starvation [Unknown]
  - Dyspnoea [Unknown]
  - Pain [Unknown]
  - Interstitial lung disease [Unknown]
  - Arthralgia [Unknown]
  - Tachycardia [Unknown]
  - Rheumatoid arthritis [Unknown]
  - Nasopharyngitis [Unknown]
